FAERS Safety Report 9490082 (Version 1)
Quarter: 2013Q3

REPORT INFORMATION
  Report Type: Spontaneous
  Country: US (occurrence: US)
  Receive Date: 20130829
  Receipt Date: 20130829
  Transmission Date: 20140515
  Serious: Yes (Other)
  Sender: FDA-Public Use
  Company Number: US-TEVA-429017USA

PATIENT
  Age: 49 Year
  Sex: Male

DRUGS (4)
  1. SILDENAFIL [Suspect]
     Indication: PHYTOTHERAPY
     Dosage: 1 DF CONTAINED 96MG SILDENAFIL
     Route: 048
  2. RITONAVIR [Interacting]
     Indication: HIV INFECTION
     Route: 048
  3. ATAZANAVIR [Interacting]
     Indication: HIV INFECTION
     Dosage: 300MG DAILY
     Route: 048
  4. LAMIVUDINE, ABACAVIR [Interacting]
     Indication: HIV INFECTION
     Dosage: 300MG LAMIVUDINE/600MG ABACAVIR DAILY
     Route: 048

REACTIONS (3)
  - Priapism [Recovered/Resolved with Sequelae]
  - Inhibitory drug interaction [Recovered/Resolved with Sequelae]
  - Erectile dysfunction [Unknown]
